FAERS Safety Report 10200825 (Version 2)
Quarter: 2014Q2

REPORT INFORMATION
  Report Type: Spontaneous
  Country: US (occurrence: US)
  Receive Date: 20140528
  Receipt Date: 20140528
  Transmission Date: 20141212
  Serious: No
  Sender: FDA-Public Use
  Company Number: US-BAYER-2014-067791

PATIENT
  Age: 66 Year
  Sex: Male

DRUGS (1)
  1. BETASERON [Suspect]
     Indication: MULTIPLE SCLEROSIS

REACTIONS (1)
  - Hypersensitivity [None]
